FAERS Safety Report 9989107 (Version 2)
Quarter: 2014Q1

REPORT INFORMATION
  Report Type: Report from Study
  Country: US (occurrence: US)
  Receive Date: 20140310
  Receipt Date: 20140310
  Transmission Date: 20141002
  Serious: No
  Sender: FDA-Public Use
  Company Number: US-ABBVIE-13P-163-1123322-00

PATIENT
  Age: 64 Year
  Sex: Female

DRUGS (15)
  1. HUMIRA [Suspect]
     Indication: PSORIATIC ARTHROPATHY
     Dosage: INITIAL DOSE
     Dates: start: 20130708
  2. VITAMIN B-12 [Concomitant]
     Indication: PRODUCT USED FOR UNKNOWN INDICATION
     Route: 050
  3. METHOTREXATE [Concomitant]
     Indication: ARTHRITIS
     Dosage: EVERY WEDNESDAY
     Route: 050
  4. LEUCOVORIN [Concomitant]
     Indication: ARTHRITIS
     Dosage: TWO PILLS ON WEDNESDAY
  5. FOLIC ACID [Concomitant]
     Indication: PRODUCT USED FOR UNKNOWN INDICATION
     Dosage: EXCEPT ON WEDNESDAYS
  6. PANTOPRAZOLE [Concomitant]
     Indication: PRODUCT USED FOR UNKNOWN INDICATION
  7. MONTELUKAST [Concomitant]
     Indication: PRODUCT USED FOR UNKNOWN INDICATION
  8. METOPROLOL [Concomitant]
     Indication: HYPERTENSION
  9. PRAVASTATIN [Concomitant]
     Indication: BLOOD CHOLESTEROL INCREASED
  10. PRAVASTATIN [Concomitant]
     Dosage: MON, WED AND FRI
     Dates: start: 20130715
  11. PRAVASTATIN [Concomitant]
     Dosage: SUN, TUES, THURS AND SAT
     Dates: start: 20130715
  12. BABY ASPIRIN [Concomitant]
     Indication: PRODUCT USED FOR UNKNOWN INDICATION
     Dosage: DAILY
  13. GABAPENTIN [Concomitant]
     Indication: PAIN
     Dosage: IN THE MORNING
  14. GABAPENTIN [Concomitant]
     Dosage: IN THE NIGHT
  15. LOSARTAN [Concomitant]
     Indication: PRODUCT USED FOR UNKNOWN INDICATION
     Dates: start: 20130715

REACTIONS (6)
  - Nasal congestion [Not Recovered/Not Resolved]
  - Headache [Recovering/Resolving]
  - Injection site pain [Recovered/Resolved]
  - Hypertension [Not Recovered/Not Resolved]
  - Headache [Not Recovered/Not Resolved]
  - Feeling hot [Not Recovered/Not Resolved]
